FAERS Safety Report 5093749-1 (Version None)
Quarter: 2006Q3

REPORT INFORMATION
  Report Type: 
  Country: None (occurrence: None)
  Receive Date: 20060831
  Receipt Date: 20060810
  Transmission Date: 20061208
  Serious: Yes (Life-Threatening, Hospitalization)
  Sender: FDA-Public Use
  Company Number: DE-AVENTIS-200612395DE

PATIENT
  Age: 53 Year
  Sex: Female
  Weight: 61 kg

DRUGS (5)
  1. CLEXANE [Suspect]
     Indication: ANTICOAGULANT THERAPY
     Route: 058
     Dates: start: 20060701
  2. CLEXANE [Suspect]
     Indication: AORTIC VALVE REPLACEMENT
     Route: 058
     Dates: start: 20060701
  3. MARCUMAR [Suspect]
     Indication: ANTICOAGULANT THERAPY
     Route: 048
  4. CLINDAMYCIN [Concomitant]
     Dosage: DOSE: 3X600
     Route: 042
  5. CLINDAMYCIN HCL [Concomitant]
     Indication: PROPHYLAXIS
     Route: 048
     Dates: start: 20060715, end: 20060718

REACTIONS (6)
  - ACTIVATED PARTIAL THROMBOPLASTIN TIME PROLONGED [None]
  - COAGULATION TEST ABNORMAL [None]
  - COAGULOPATHY [None]
  - HAEMORRHAGE [None]
  - PROTHROMBIN TIME PROLONGED [None]
  - TOOTH EXTRACTION [None]
